FAERS Safety Report 4943427-1 (Version None)
Quarter: 2006Q1

REPORT INFORMATION
  Report Type: 
  Country: None (occurrence: None)
  Receive Date: 20060313
  Receipt Date: 20060313
  Transmission Date: 20060701
  Serious: Yes (Other)
  Sender: FDA-Public Use
  Company Number: None

PATIENT
  Age: 56 Year
  Sex: Female

DRUGS (2)
  1. CELEXA [Suspect]
     Indication: DEPRESSION
     Dosage: ONE PO QDAY
     Route: 048
  2. FLONASE [Concomitant]

REACTIONS (1)
  - URTICARIA [None]
